FAERS Safety Report 5092051-1 (Version None)
Quarter: 2006Q3

REPORT INFORMATION
  Report Type: 
  Country: None (occurrence: None)
  Receive Date: 20060825
  Receipt Date: 20060712
  Transmission Date: 20061208
  Serious: Yes (Other)
  Sender: FDA-Public Use
  Company Number: GB-2006-024066

PATIENT
  Sex: Male

DRUGS (2)
  1. BETAFERON (INTERFERON BETA - 1B)INJECTION 250?G [Suspect]
     Indication: MULTIPLE SCLEROSIS
     Dosage: SUBCUTANEOUS
     Route: 058
     Dates: start: 20010101
  2. CORTICOSTEROID NO (CORTICOSTEROID NOS) [Suspect]

REACTIONS (1)
  - DIABETES MELLITUS [None]
